FAERS Safety Report 11618522 (Version 3)
Quarter: 2016Q1

REPORT INFORMATION
  Report Type: Spontaneous
  Country: DE (occurrence: DE)
  Receive Date: 20151012
  Receipt Date: 20160119
  Transmission Date: 20160525
  Serious: Yes (Death, Other)
  Sender: FDA-Public Use
  Company Number: DE-ROCHE-1642537

PATIENT
  Age: 14 Year
  Sex: Male

DRUGS (9)
  1. VINCRISTINE [Suspect]
     Active Substance: VINCRISTINE
     Dosage: DAYS 1 AND 8
     Route: 042
  2. PROCARBAZINE [Suspect]
     Active Substance: PROCARBAZINE
     Dosage: DAYS 1 TO 15
     Route: 048
  3. PREDNISONE. [Suspect]
     Active Substance: PREDNISONE
     Indication: HODGKIN^S DISEASE NODULAR SCLEROSIS
     Dosage: DAYS 1-15
     Route: 048
  4. CYCLOPHOSPHAMIDE. [Suspect]
     Active Substance: CYCLOPHOSPHAMIDE
     Dosage: DAY 1 + DAY 8
     Route: 042
  5. VINCRISTINE [Suspect]
     Active Substance: VINCRISTINE
     Indication: HODGKIN^S DISEASE NODULAR SCLEROSIS
     Dosage: DAYS 1 AND 8
     Route: 042
  6. BRENTUXIMAB VEDOTIN [Suspect]
     Active Substance: BRENTUXIMAB VEDOTIN
     Indication: HODGKIN^S DISEASE NODULAR SCLEROSIS
     Dosage: OVER 30 MIN, APPROXIMATELY 1.8 MG/KG BODY WEIGHT
     Route: 042
  7. RITUXIMAB [Suspect]
     Active Substance: RITUXIMAB
     Indication: HODGKIN^S DISEASE NODULAR SCLEROSIS
     Dosage: DAY 2
     Route: 042
  8. PROCARBAZINE [Suspect]
     Active Substance: PROCARBAZINE
     Indication: HODGKIN^S DISEASE NODULAR SCLEROSIS
     Dosage: DAYS 1 TO 15
     Route: 048
  9. CYCLOPHOSPHAMIDE. [Suspect]
     Active Substance: CYCLOPHOSPHAMIDE
     Indication: HODGKIN^S DISEASE NODULAR SCLEROSIS
     Dosage: DAY 1 + DAY 8
     Route: 042

REACTIONS (11)
  - Respiratory failure [Fatal]
  - Oral candidiasis [Unknown]
  - Sepsis [Fatal]
  - General physical health deterioration [Recovered/Resolved]
  - Anaemia [Unknown]
  - Peritonitis [Fatal]
  - Neurological decompensation [Recovered/Resolved]
  - B-lymphocyte count decreased [Unknown]
  - Gastroenteritis [Unknown]
  - Febrile neutropenia [Unknown]
  - Platelet count decreased [Unknown]
